FAERS Safety Report 4297196-1 (Version None)
Quarter: 2004Q1

REPORT INFORMATION
  Report Type: 
  Country: None (occurrence: None)
  Receive Date: 20040213
  Receipt Date: 20040202
  Transmission Date: 20041129
  Serious: Yes (Hospitalization, Other)
  Sender: FDA-Public Use
  Company Number: 2004006933

PATIENT
  Age: 44 Year
  Sex: Female

DRUGS (2)
  1. NARDIL [Suspect]
     Indication: ILL-DEFINED DISORDER
     Dosage: 75 MG (FIVE TIMES DAILY)
  2. PROMETHAZINE VC (PROMETHAZINE HYDROCHLORIDE, PHENYLEPHRINE HYDROCHLORI [Suspect]
     Indication: ILL-DEFINED DISORDER

REACTIONS (1)
  - DRUG INTERACTION [None]
